FAERS Safety Report 4444862-0 (Version None)
Quarter: 2004Q3

REPORT INFORMATION
  Report Type: 
  Country: None (occurrence: None)
  Receive Date: 20040903
  Receipt Date: 20040823
  Transmission Date: 20050211
  Serious: Yes (Hospitalization)
  Sender: FDA-Public Use
  Company Number: K200401298

PATIENT
  Age: 75 Year
  Sex: Male

DRUGS (1)
  1. ALTACE [Suspect]
     Indication: HYPERTENSION
     Dosage: 3.8 MG, QD, ORAL
     Route: 048
     Dates: start: 20040201, end: 20040401

REACTIONS (5)
  - ANGIONEUROTIC OEDEMA [None]
  - DYSPNOEA [None]
  - GRANULOMA [None]
  - LARYNGEAL OEDEMA [None]
  - LEUKOPLAKIA [None]
